FAERS Safety Report 21279344 (Version 2)
Quarter: 2022Q4

REPORT INFORMATION
  Report Type: Report from Study
  Country: US (occurrence: US)
  Receive Date: 20220901
  Receipt Date: 20221003
  Transmission Date: 20230113
  Serious: Yes (Death, Hospitalization, Other)
  Sender: FDA-Public Use
  Company Number: US-EXELIXIS-CABO-22055418

PATIENT
  Age: 50 Year
  Sex: Male
  Weight: 100 kg

DRUGS (22)
  1. CABOMETYX [Suspect]
     Active Substance: CABOZANTINIB S-MALATE
     Indication: Renal cell carcinoma
     Dosage: 40 MG TABLET EVERY OTHER DAY ALTERNATING WITH 20 MG TABLET
     Route: 048
     Dates: start: 20220318
  2. CABOMETYX [Suspect]
     Active Substance: CABOZANTINIB S-MALATE
     Dosage: 40 MG TABLET EVERY OTHER DAY ALTERNATING WITH 20 MG TABLET
     Route: 048
  3. LENVIMA [Suspect]
     Active Substance: LENVATINIB
     Indication: Renal cell carcinoma
     Dosage: UNK
     Dates: start: 20220628
  4. BACLOFEN [Concomitant]
     Active Substance: BACLOFEN
  5. CLONIDINE [Concomitant]
     Active Substance: CLONIDINE
  6. ALBUTEROL\IPRATROPIUM [Concomitant]
     Active Substance: ALBUTEROL\IPRATROPIUM
  7. TAMSULOSIN HYDROCHLORIDE [Concomitant]
     Active Substance: TAMSULOSIN HYDROCHLORIDE
  8. ELIQUIS [Concomitant]
     Active Substance: APIXABAN
  9. DILTIAZEM [Concomitant]
     Active Substance: DILTIAZEM
  10. CYCLOBENZAPRINE HYDROCHLORIDE [Concomitant]
     Active Substance: CYCLOBENZAPRINE HYDROCHLORIDE
  11. METHYLPREDNISOLONE [Concomitant]
     Active Substance: METHYLPREDNISOLONE
  12. AZITHROMYCIN [Concomitant]
     Active Substance: AZITHROMYCIN
  13. Hydrocodone-Acetaminop [Concomitant]
  14. OLMESARTAN MEDOXOMIL [Concomitant]
     Active Substance: OLMESARTAN MEDOXOMIL
  15. GLIMEPIRIDE [Concomitant]
     Active Substance: GLIMEPIRIDE
  16. FARXIGA [Concomitant]
     Active Substance: DAPAGLIFLOZIN PROPANEDIOL
  17. POTASSIUM CHLORIDE [Concomitant]
     Active Substance: POTASSIUM CHLORIDE
  18. VITAMIN D2 [Concomitant]
     Active Substance: ERGOCALCIFEROL
  19. METOPROLOL SUCCINATE [Concomitant]
     Active Substance: METOPROLOL SUCCINATE
  20. FENOFIBRATE [Concomitant]
     Active Substance: FENOFIBRATE
  21. DEXAMETHASONE [Concomitant]
     Active Substance: DEXAMETHASONE
  22. ASPIRIN [Concomitant]
     Active Substance: ASPIRIN

REACTIONS (8)
  - Pneumothorax [Not Recovered/Not Resolved]
  - Renal disorder [Not Recovered/Not Resolved]
  - Death [Fatal]
  - Oral candidiasis [Not Recovered/Not Resolved]
  - Hyperaesthesia teeth [Not Recovered/Not Resolved]
  - Thrombosis [Not Recovered/Not Resolved]
  - Hypoaesthesia [Not Recovered/Not Resolved]
  - Paraesthesia [Not Recovered/Not Resolved]

NARRATIVE: CASE EVENT DATE: 20220801
